FAERS Safety Report 16882530 (Version 1)
Quarter: 2019Q4

REPORT INFORMATION
  Report Type: Spontaneous
  Country: US (occurrence: US)
  Receive Date: 20191003
  Receipt Date: 20191003
  Transmission Date: 20200122
  Serious: No
  Sender: FDA-Public Use
  Company Number: US-GREER LABORATORIES, INC.-2075274

PATIENT
  Age: 50 Year
  Sex: Female
  Weight: 79.55 kg

DRUGS (6)
  1. POLLENS - TREES, ALDER, RED ALNUS RUBRA [Suspect]
     Active Substance: ALNUS RUBRA POLLEN
     Route: 058
     Dates: start: 201809, end: 20190329
  2. STERILE DILUENT FOR ALLERGENIC EXTRACT (ALBUMIN (HUMAN)\PHENOL) [Suspect]
     Active Substance: ALBUMIN HUMAN\PHENOL
     Route: 058
     Dates: start: 201809, end: 20190329
  3. 7 GRASS MIX [Suspect]
     Active Substance: AGROSTIS GIGANTEA POLLEN\ANTHOXANTHUM ODORATUM\DACTYLIS GLOMERATA\FESTUCA PRATENSIS\LOLIUM PERENNE\PHLEUM PRATENSE\POA PRATENSIS
     Route: 058
     Dates: start: 201809, end: 20190329
  4. BIRCH MIX [Suspect]
     Active Substance: BETULA NIGRA POLLEN\BETULA POPULIFOLIA POLLEN
     Route: 058
     Dates: start: 201809, end: 20190329
  5. IBUPROFEN. [Concomitant]
     Active Substance: IBUPROFEN
     Route: 048
  6. CLARITIN [Concomitant]
     Active Substance: LORATADINE
     Route: 048

REACTIONS (4)
  - Confusional state [Unknown]
  - Polyarthritis [Not Recovered/Not Resolved]
  - Sleep disorder [Unknown]
  - Lethargy [Unknown]

NARRATIVE: CASE EVENT DATE: 20190331
